FAERS Safety Report 4535388-4 (Version None)
Quarter: 2004Q4

REPORT INFORMATION
  Report Type: 
  Country: None (occurrence: None)
  Receive Date: 20041214
  Receipt Date: 20040908
  Transmission Date: 20050328
  Serious: No
  Sender: FDA-Public Use
  Company Number: 2004234624US

PATIENT
  Age: 48 Year
  Sex: Male
  Weight: 77.6 kg

DRUGS (7)
  1. BEXTRA [Suspect]
     Indication: CHEST DISCOMFORT
     Dosage: 10 MG, QD, ORAL
     Route: 048
     Dates: start: 20040907
  2. SYNTHROID [Concomitant]
  3. ATIVAN [Concomitant]
  4. POTASSIUM [Concomitant]
  5. CATAPRES [Concomitant]
  6. MULTIVITAMIN [Concomitant]
  7. SUPPLEMENTS [Concomitant]

REACTIONS (2)
  - CHEST DISCOMFORT [None]
  - PAIN [None]
